FAERS Safety Report 14029441 (Version 3)
Quarter: 2017Q4

REPORT INFORMATION
  Report Type: Report from Study
  Country: DE (occurrence: DE)
  Receive Date: 20171002
  Receipt Date: 20171127
  Transmission Date: 20180321
  Serious: Yes (Hospitalization)
  Sender: FDA-Public Use
  Company Number: DE-EMD SERONO-8177333

PATIENT
  Age: 50 Year
  Sex: Male
  Weight: 73 kg

DRUGS (5)
  1. DECORTIN [Concomitant]
     Active Substance: PREDNISONE
     Indication: COLITIS
     Dosage: 50 (UNIT NOT PROVIDED)
     Route: 048
     Dates: start: 20170530
  2. MCP [Concomitant]
     Active Substance: METOCLOPRAMIDE HYDROCHLORIDE
     Indication: PROPHYLAXIS OF NAUSEA AND VOMITING
     Dosage: 10 (UNIT NOT PROVIDED)
     Route: 048
     Dates: start: 20170602
  3. LOPERAMID [Concomitant]
     Active Substance: LOPERAMIDE
     Indication: COLITIS
     Dosage: 2 (UNIT NOT PROVIDED)
     Route: 048
     Dates: start: 20170602
  4. PANTOZOL [Concomitant]
     Active Substance: PANTOPRAZOLE SODIUM
     Indication: GASTRITIS PROPHYLAXIS
     Dosage: 40 (UNIT NOT PROVIDED)
     Route: 048
     Dates: start: 20170217
  5. AVELUMAB [Suspect]
     Active Substance: AVELUMAB
     Indication: RENAL CELL CARCINOMA
     Route: 042
     Dates: start: 20161024, end: 20170508

REACTIONS (1)
  - Gastrointestinal amyloidosis [Not Recovered/Not Resolved]

NARRATIVE: CASE EVENT DATE: 20170814
